FAERS Safety Report 6607597-1 (Version None)
Quarter: 2010Q1

REPORT INFORMATION
  Report Type: 
  Country: None (occurrence: None)
  Receive Date: 20100212
  Receipt Date: 20091113
  Transmission Date: 20100710
  Serious: Yes (Hospitalization)
  Sender: FDA-Public Use
  Company Number: MTRX20090004

PATIENT
  Age: 10 Year
  Sex: Female
  Weight: 40 kg

DRUGS (1)
  1. METHOTREXATE SODIUM [Suspect]
     Indication: BONE SARCOMA
     Dosage: 12 G/M2 OVER 4 HOURS, INTRAVENOUS
     Route: 042
     Dates: start: 20091015, end: 20091015

REACTIONS (2)
  - BLOOD CREATININE INCREASED [None]
  - CHEMOTHERAPEUTIC DRUG LEVEL INCREASED [None]
